FAERS Safety Report 24583143 (Version 1)
Quarter: 2024Q4

REPORT INFORMATION
  Report Type: Spontaneous
  Country: FR (occurrence: FR)
  Receive Date: 20241106
  Receipt Date: 20241106
  Transmission Date: 20250115
  Serious: Yes (Congenital Anomaly, Other)
  Sender: AUROBINDO
  Company Number: FR-AFSSAPS-MP2024001512

PATIENT
  Age: 1 Year
  Sex: Female
  Weight: 0.142 kg

DRUGS (1)
  1. MODAFINIL [Suspect]
     Active Substance: MODAFINIL
     Indication: Narcolepsy
     Dosage: 400 MILLIGRAM, ONCE A DAY
     Route: 064
     Dates: start: 20221005

REACTIONS (2)
  - Talipes [Unknown]
  - Maternal exposure during pregnancy [Recovered/Resolved]
